FAERS Safety Report 8101992-X (Version None)
Quarter: 2012Q1

REPORT INFORMATION
  Report Type: 
  Country: None (occurrence: None)
  Receive Date: 20120131
  Receipt Date: 20120130
  Transmission Date: 20120608
  Serious: Yes (Other)
  Sender: FDA-Public Use
  Company Number: GB-AMGEN-GBRSP2011033658

PATIENT
  Age: 45 Year
  Sex: Male
  Weight: 80 kg

DRUGS (10)
  1. NPLATE [Suspect]
     Indication: IDIOPATHIC THROMBOCYTOPENIC PURPURA
     Dosage: 10 MUG/KG, QWK
     Route: 058
     Dates: start: 20100101, end: 20110711
  2. CYCLOPHOSPHAMIDE [Concomitant]
     Indication: IDIOPATHIC THROMBOCYTOPENIC PURPURA
  3. NPLATE [Suspect]
  4. NPLATE [Suspect]
  5. NPLATE [Suspect]
  6. PREDNISONE TAB [Concomitant]
     Indication: IDIOPATHIC THROMBOCYTOPENIC PURPURA
  7. VINCRISTINE [Concomitant]
     Indication: IDIOPATHIC THROMBOCYTOPENIC PURPURA
  8. NPLATE [Suspect]
  9. RITUXIMAB [Concomitant]
     Indication: IDIOPATHIC THROMBOCYTOPENIC PURPURA
  10. NPLATE [Suspect]

REACTIONS (6)
  - MEGAKARYOCYTES INCREASED [None]
  - BIOPSY BONE MARROW ABNORMAL [None]
  - LYMPHOMA [None]
  - RETICULIN INCREASED [None]
  - PLATELET COUNT ABNORMAL [None]
  - HAEMORRHAGE [None]
